FAERS Safety Report 18245511 (Version 2)
Quarter: 2020Q3

REPORT INFORMATION
  Report Type: Spontaneous
  Country: JP (occurrence: JP)
  Receive Date: 20200909
  Receipt Date: 20200916
  Transmission Date: 20201103
  Serious: Yes (Death)
  Sender: FDA-Public Use
  Company Number: JP-ROCHE-2673613

PATIENT
  Age: 8 Decade

DRUGS (1)
  1. PERJETA [Suspect]
     Active Substance: PERTUZUMAB
     Indication: BREAST CANCER RECURRENT
     Dosage: MOST RECENT DOSE PRIOR TO AE //2020
     Route: 041
     Dates: start: 20200511

REACTIONS (1)
  - Disease progression [Fatal]
